FAERS Safety Report 23462067 (Version 1)
Quarter: 2024Q1

REPORT INFORMATION
  Report Type: Spontaneous
  Country: TR (occurrence: TR)
  Receive Date: 20240131
  Receipt Date: 20240131
  Transmission Date: 20240410
  Serious: Yes (Other)
  Sender: FDA-Public Use
  Company Number: TR-002147023-NVSC2024TR018311

PATIENT
  Age: 91 Year
  Sex: Male

DRUGS (1)
  1. EXELON [Suspect]
     Active Substance: RIVASTIGMINE TARTRATE
     Indication: Dementia Alzheimer^s type
     Dosage: UNK (SINCE 2014 OR 2015) (APPLYING AT EVENGINGS
     Route: 062

REACTIONS (6)
  - Neoplasm malignant [Unknown]
  - Gastric haemorrhage [Unknown]
  - Blood pressure increased [Unknown]
  - Cognitive disorder [Unknown]
  - Gait disturbance [Unknown]
  - Product supply issue [Unknown]
